FAERS Safety Report 15682690 (Version 1)
Quarter: 2018Q4

REPORT INFORMATION
  Report Type: Report from Study
  Country: US (occurrence: US)
  Receive Date: 20181203
  Receipt Date: 20181203
  Transmission Date: 20190205
  Serious: Yes (Disabling)
  Sender: FDA-Public Use
  Company Number: US-ASTRAZENECA-2018SF25176

PATIENT
  Age: 19157 Day
  Sex: Female

DRUGS (1)
  1. FASENRA [Suspect]
     Active Substance: BENRALIZUMAB
     Indication: ASTHMA
     Route: 058
     Dates: start: 20180806

REACTIONS (3)
  - Upper respiratory tract infection [Unknown]
  - Off label use [Unknown]
  - Migraine [Unknown]

NARRATIVE: CASE EVENT DATE: 20180806
